FAERS Safety Report 12262017 (Version 1)
Quarter: 2016Q2

REPORT INFORMATION
  Report Type: Spontaneous
  Country: US (occurrence: US)
  Receive Date: 20160413
  Receipt Date: 20160413
  Transmission Date: 20160815
  Serious: No
  Sender: FDA-Public Use
  Company Number: US-AUROBINDO-AUR-APU-2015-07766

PATIENT
  Sex: Female

DRUGS (1)
  1. METFORMIN 500MG [Suspect]
     Active Substance: METFORMIN HYDROCHLORIDE
     Indication: DIABETES MELLITUS
     Dosage: 1 DF, TWO TIMES A DAY
     Route: 065

REACTIONS (2)
  - Product odour abnormal [Recovered/Resolved]
  - Urine odour abnormal [Recovered/Resolved]
